FAERS Safety Report 19938439 (Version 5)
Quarter: 2022Q2

REPORT INFORMATION
  Report Type: Other
  Country: IT (occurrence: IT)
  Receive Date: 20211011
  Receipt Date: 20220427
  Transmission Date: 20220721
  Serious: Yes (Hospitalization, Other)
  Sender: FDA-Public Use
  Company Number: IT-CELLTRION INC.-2021IT013600

PATIENT

DRUGS (11)
  1. TRASTUZUMAB [Suspect]
     Active Substance: TRASTUZUMAB
     Indication: Breast cancer
     Dosage: 8 MG/KG - TRASTUZUMAB (348 MG) PRIOR TO SAE ONSET: 23/JUL/2021, 3 TIMES WEEKLY
     Route: 041
     Dates: start: 20210409
  2. TRASTUZUMAB [Suspect]
     Active Substance: TRASTUZUMAB
     Dosage: TRASTUZUMAB (348 MG) PRIOR TO SAE ONSET: 23JUL2021,MAINTAINENCE DOSE
     Route: 041
  3. PACLITAXEL [Suspect]
     Active Substance: PACLITAXEL
     Indication: Breast cancer
     Dosage: 90MG/M2, EVERY 3 WEEKS (MOST RECENT DOSE OF PACLITAXEL (130MG) PRIOR TO SAE ONSET: 23JUL/2021
     Route: 042
     Dates: start: 20210409, end: 20210819
  4. PACLITAXEL [Suspect]
     Active Substance: PACLITAXEL
     Dosage: UNK
  5. ATEZOLIZUMAB [Suspect]
     Active Substance: ATEZOLIZUMAB
     Indication: Breast cancer
     Dosage: 1200 MG EVERY 3 WEEKS (MOST RECENT DOSE OF ATEZOLIZUMAB (1200MG) PRIOR TO SAE ONSET: 16/JUL/2021
     Route: 041
     Dates: start: 20210409, end: 20210819
  6. CARBOPLATIN [Suspect]
     Active Substance: CARBOPLATIN
     Indication: Breast cancer
     Dosage: CARBOPLATIN (180 MG) PRIOR TO SAE ONSET: 23JUL/2021
     Route: 042
     Dates: start: 20210409, end: 20210819
  7. ACETAMINOPHEN\CODEINE PHOSPHATE [Concomitant]
     Active Substance: ACETAMINOPHEN\CODEINE PHOSPHATE
     Indication: Pain
     Dosage: UNK
     Dates: start: 20210330, end: 20210809
  8. ACETAMINOPHEN [Concomitant]
     Active Substance: ACETAMINOPHEN
     Indication: Pain
     Dosage: UNK
     Dates: start: 20210330, end: 20210809
  9. PERTUZUMAB [Concomitant]
     Active Substance: PERTUZUMAB
     Indication: Breast cancer
     Dosage: TRASTUZUMAB (348 MG) PRIOR TO SAE ONSET: 16/JUL/20216 MG/KG MAINTAINENCE DOSE
     Route: 041
     Dates: start: 20210409
  10. PERTUZUMAB [Concomitant]
     Active Substance: PERTUZUMAB
     Dosage: PERTUZUMAB (420 MG) PRIOR TO SAE ONSET: 16/JUL/2021420 MG MAINTAINENCE DOSE
     Route: 042
  11. PARACETAMOL AND IBUPROFEN [Concomitant]
     Indication: Pain
     Dosage: UNK
     Dates: start: 20210809, end: 20210812

REACTIONS (2)
  - Renal failure [Recovered/Resolved]
  - Underdose [Unknown]

NARRATIVE: CASE EVENT DATE: 20210812
